FAERS Safety Report 4733546-7 (Version None)
Quarter: 2005Q3

REPORT INFORMATION
  Report Type: 
  Country: None (occurrence: None)
  Receive Date: 20050729
  Receipt Date: 20050519
  Transmission Date: 20060218
  Serious: No
  Sender: FDA-Public Use
  Company Number: COT_0072_2005

PATIENT
  Age: 37 Year
  Sex: Female
  Weight: 82.9175 kg

DRUGS (15)
  1. VENTAVIS [Suspect]
     Indication: PULMONARY HYPERTENSION
     Dosage: 5 MCG IH
     Route: 055
  2. LASIX [Concomitant]
  3. COUMADIN [Concomitant]
  4. COUMADIN [Concomitant]
  5. VERELAN [Concomitant]
  6. PERCOCET [Concomitant]
  7. CALCIUM GLUCONATE [Concomitant]
  8. LEXAPRO [Concomitant]
  9. IMITREX [Concomitant]
  10. ZESTRIL [Concomitant]
  11. PREDNISONE [Concomitant]
  12. TRAZODONE [Concomitant]
  13. LIPITOR [Concomitant]
  14. TRACLEER [Concomitant]
  15. VIAGRA [Concomitant]

REACTIONS (2)
  - ABDOMINAL PAIN UPPER [None]
  - HEADACHE [None]
